FAERS Safety Report 15144484 (Version 1)
Quarter: 2018Q3

REPORT INFORMATION
  Report Type: Spontaneous
  Country: US (occurrence: US)
  Receive Date: 20180713
  Receipt Date: 20180713
  Transmission Date: 20181010
  Serious: No
  Sender: FDA-Public Use
  Company Number: US-NOVOPROD-604486

PATIENT
  Age: 36 Year
  Sex: Male

DRUGS (1)
  1. FIASP [Suspect]
     Active Substance: INSULIN ASPART
     Indication: TYPE 1 DIABETES MELLITUS
     Dosage: BASAL RATE PLUS MEALTIME BOLUS
     Route: 058
     Dates: start: 20180520, end: 2018

REACTIONS (6)
  - Blister [Not Recovered/Not Resolved]
  - Penile abscess [Not Recovered/Not Resolved]
  - Genital blister [Not Recovered/Not Resolved]
  - Hypersensitivity [Recovered/Resolved]
  - Furuncle [Not Recovered/Not Resolved]
  - Wrong technique in product usage process [Not Recovered/Not Resolved]

NARRATIVE: CASE EVENT DATE: 2018
